FAERS Safety Report 9246918 (Version 1)
Quarter: 2013Q2

REPORT INFORMATION
  Report Type: Spontaneous
  Country: US (occurrence: US)
  Receive Date: 20130422
  Receipt Date: 20130422
  Transmission Date: 20140414
  Serious: Yes (Hospitalization, Other)
  Sender: FDA-Public Use
  Company Number: US-PFIZER INC-2013119417

PATIENT
  Age: 13 Month
  Sex: 0
  Weight: 8.6 kg

DRUGS (9)
  1. EPINEPHRINE [Suspect]
     Indication: RESPIRATORY DISTRESS
     Dosage: 0.25 ML OF 2.25% RACEMIC EPINEPHRINE IN 2.0 ML OF NORMAL SALINE; WITH OXYGEN EIGHT TIMES
     Route: 055
  2. EPINEPHRINE [Suspect]
     Dosage: 1:10000 80MG
     Route: 042
  3. OXYGEN [Concomitant]
     Indication: RESPIRATORY DISTRESS
     Dosage: UNK
     Route: 055
  4. ATROPINE SULFATE [Concomitant]
     Dosage: 0.08 MG, UNK
     Route: 042
  5. ATROPINE SULFATE [Concomitant]
     Dosage: 0.16 MG, UNK
  6. METHOHEXITAL SODIUM [Concomitant]
     Dosage: 20 MG, UNK
     Route: 042
  7. SUCCINYLCHOLINE CHLORIDE [Concomitant]
     Dosage: 20 MG, UNK
     Route: 042
  8. SODIUM BICARBONATE [Concomitant]
     Indication: METABOLIC ACIDOSIS
     Dosage: 8 MEQ, UNK
  9. CALCIUM CHLORIDE [Suspect]
     Dosage: 240 MG, UNK

REACTIONS (10)
  - Incorrect route of drug administration [Unknown]
  - Incorrect dose administered [Unknown]
  - Supraventricular tachycardia [Recovered/Resolved]
  - Cardio-respiratory arrest [Recovered/Resolved]
  - Bradycardia [Recovered/Resolved]
  - Pulmonary oedema [Recovered/Resolved]
  - Pallor [Recovered/Resolved]
  - Pulse absent [Recovered/Resolved]
  - Metabolic acidosis [Recovered/Resolved]
  - Drug ineffective [Unknown]
